FAERS Safety Report 13721317 (Version 2)
Quarter: 2017Q3

REPORT INFORMATION
  Report Type: Report from Study
  Country: US (occurrence: US)
  Receive Date: 20170706
  Receipt Date: 20170714
  Transmission Date: 20171127
  Serious: No
  Sender: FDA-Public Use
  Company Number: GXBR2017US002113

PATIENT
  Sex: Male
  Weight: 90.7 kg

DRUGS (1)
  1. GLATOPA [Suspect]
     Active Substance: GLATIRAMER ACETATE
     Indication: MULTIPLE SCLEROSIS
     Dosage: 20 MG, QD
     Route: 058
     Dates: start: 201704

REACTIONS (9)
  - Swelling [Not Recovered/Not Resolved]
  - Weight fluctuation [Not Recovered/Not Resolved]
  - Tremor [Not Recovered/Not Resolved]
  - Injection site mass [Not Recovered/Not Resolved]
  - Amnesia [Not Recovered/Not Resolved]
  - Arthralgia [Not Recovered/Not Resolved]
  - Injection site erythema [Not Recovered/Not Resolved]
  - Headache [Not Recovered/Not Resolved]
  - Injection site irritation [Not Recovered/Not Resolved]
